FAERS Safety Report 10960961 (Version 1)
Quarter: 2015Q1

REPORT INFORMATION
  Report Type: Spontaneous
  Country: JP (occurrence: None)
  Receive Date: 20150325
  Receipt Date: 20150325
  Transmission Date: 20150721
  Serious: Yes (Other)
  Sender: FDA-Public Use
  Company Number: INT_00721_2015

PATIENT

DRUGS (4)
  1. 5-FLUOROURACIL /00098801/ [Suspect]
     Active Substance: FLUOROURACIL
     Indication: OESOPHAGEAL CARCINOMA
     Dosage: (600 MG/M2 [CONTINUOUSLY ON DAYS 1 TO 4 AND 28 TO 32]
     Route: 042
  2. DOCETAXEL (DOCETAXEL) [Suspect]
     Active Substance: DOCETAXEL
     Indication: OESOPHAGEAL CARCINOMA
     Dosage: (50 MG/M2 [OVER 2 HOURS ON DAYS 1 AND 29]
     Route: 042
  3. CISPLATIN (CISPLATIN) (HQ SPECIALTY) [Suspect]
     Active Substance: CISPLATIN
     Indication: OESOPHAGEAL CARCINOMA
     Dosage: (60 MG/M2 [OVER 2 HOURS ON DAYS 1 AND 29]
     Route: 042
  4. RADIOTHERAPY [Suspect]
     Active Substance: RADIATION THERAPY
     Indication: OESOPHAGEAL CARCINOMA
     Dosage: ([10MV X-RAYS AT 2 GY DAILY AND 5 FRACTIONS PER WEEK])

REACTIONS (1)
  - Oesophageal fistula [None]
